FAERS Safety Report 7516120-9 (Version None)
Quarter: 2011Q2

REPORT INFORMATION
  Report Type: 
  Country: None (occurrence: None)
  Receive Date: 20110601
  Receipt Date: 20110523
  Transmission Date: 20111010
  Serious: Yes (Other)
  Sender: FDA-Public Use
  Company Number: RO-ROCHE-775425

PATIENT
  Sex: Male

DRUGS (6)
  1. INTERFERON [Suspect]
     Route: 065
     Dates: start: 20100728, end: 20110330
  2. ALUMINUM HYDROXIDE AND MAGNESIUM TRISILICATE [Concomitant]
     Dates: start: 20110128
  3. RIBAVIRIN [Suspect]
     Dosage: REDUCED DOSAGE
     Route: 065
     Dates: start: 20100811
  4. INTERFERON ALFA [Suspect]
     Route: 065
     Dates: start: 20100728, end: 20110330
  5. RIBAVIRIN [Suspect]
     Dosage: REDUCED DOSAGE
     Route: 065
     Dates: start: 20101007, end: 20110403
  6. RIBAVIRIN [Suspect]
     Route: 065
     Dates: start: 20100728, end: 20100810

REACTIONS (2)
  - HEPATIC ENZYME INCREASED [None]
  - HYPERBILIRUBINAEMIA [None]
